FAERS Safety Report 17810307 (Version 3)
Quarter: 2020Q3

REPORT INFORMATION
  Report Type: Report from Study
  Country: US (occurrence: US)
  Receive Date: 20200520
  Receipt Date: 20200727
  Transmission Date: 20201102
  Serious: Yes (Death)
  Sender: FDA-Public Use
  Company Number: US-BIOGEN-2020BI00875534

PATIENT
  Age: 71 Year
  Sex: Male

DRUGS (1)
  1. TYSABRI [Suspect]
     Active Substance: NATALIZUMAB
     Indication: MULTIPLE SCLEROSIS
     Dosage: INFUSED FOR OVER ONE HOUR
     Route: 042
     Dates: start: 20180523, end: 20191016

REACTIONS (1)
  - Death [Fatal]

NARRATIVE: CASE EVENT DATE: 20200409
